FAERS Safety Report 10676194 (Version 1)
Quarter: 2014Q4

REPORT INFORMATION
  Report Type: Spontaneous
  Country: FR (occurrence: FR)
  Receive Date: 20141226
  Receipt Date: 20141226
  Transmission Date: 20150529
  Serious: Yes (Other)
  Sender: FDA-Public Use
  Company Number: FR-RANBAXY-2014R1-90464

PATIENT
  Age: 13 Year
  Sex: Male

DRUGS (1)
  1. MORPHINE [Suspect]
     Active Substance: MORPHINE
     Indication: INJURY
     Dosage: UNK
     Route: 065
     Dates: start: 20130627

REACTIONS (1)
  - Pancreatitis [Recovering/Resolving]
